FAERS Safety Report 5901561-3 (Version None)
Quarter: 2008Q3

REPORT INFORMATION
  Report Type: 
  Country: None (occurrence: None)
  Receive Date: 20080925
  Receipt Date: 20080915
  Transmission Date: 20090109
  Serious: Yes (Hospitalization)
  Sender: FDA-Public Use
  Company Number: 2008AL010520

PATIENT
  Age: 27 Year
  Sex: Female

DRUGS (5)
  1. CARBAMAZEPINE [Suspect]
     Indication: AGITATION
  2. CARBAMAZEPINE [Suspect]
     Indication: PSYCHOTIC DISORDER
  3. LEVOSULPIRIDE [Concomitant]
  4. VALPROIC ACID [Concomitant]
  5. LEVOTHYROXINE SODIUM [Concomitant]

REACTIONS (10)
  - APATHY [None]
  - BRADYCARDIA [None]
  - DIABETIC KETOACIDOSIS [None]
  - HYPOTHYROIDISM [None]
  - MENTAL IMPAIRMENT [None]
  - MUCOSAL DRYNESS [None]
  - MYXOEDEMA COMA [None]
  - PALLOR [None]
  - PERIORBITAL OEDEMA [None]
  - PERIPHERAL COLDNESS [None]
